FAERS Safety Report 25956485 (Version 3)
Quarter: 2025Q4

REPORT INFORMATION
  Report Type: Spontaneous
  Country: US (occurrence: US)
  Receive Date: 20251024
  Receipt Date: 20251202
  Transmission Date: 20260118
  Serious: Yes (Other)
  Sender: RISING PHARMACEUTICALS
  Company Number: US-RISINGPHARMA-US-2025RISSPO00533

PATIENT
  Age: 78 Year
  Sex: Female

DRUGS (13)
  1. PREGABALIN [Suspect]
     Active Substance: PREGABALIN
     Indication: Spinal fracture
     Route: 065
     Dates: start: 2025
  2. PREGABALIN [Suspect]
     Active Substance: PREGABALIN
     Route: 065
     Dates: start: 2025
  3. LYRICA [Suspect]
     Active Substance: PREGABALIN
     Indication: Spinal fracture
     Route: 065
  4. DUPIXENT [Concomitant]
     Active Substance: DUPILUMAB
     Dosage: 300MG/2ML STRENGTH
     Route: 058
     Dates: start: 20240828
  5. BEET ROOT [Concomitant]
     Indication: Product use in unapproved indication
     Route: 065
  6. MONTELUKAST SODIUM [Concomitant]
     Active Substance: MONTELUKAST SODIUM
     Indication: Product used for unknown indication
     Route: 065
  7. OMEPRAZOLE [Concomitant]
     Active Substance: OMEPRAZOLE
     Indication: Product used for unknown indication
     Route: 065
  8. TRELEGY ELLIPTA [Concomitant]
     Active Substance: FLUTICASONE FUROATE\UMECLIDINIUM BROMIDE\VILANTEROL TRIFENATATE
     Indication: Product used for unknown indication
     Route: 065
  9. MINERALS\VITAMINS [Concomitant]
     Active Substance: MINERALS\VITAMINS
     Indication: Product used for unknown indication
     Route: 065
  10. CHOLECALCIFEROL [Concomitant]
     Active Substance: CHOLECALCIFEROL
     Indication: Product used for unknown indication
     Route: 065
  11. ALBUTEROL [Concomitant]
     Active Substance: ALBUTEROL
     Indication: Product used for unknown indication
     Route: 065
  12. PREGABALIN [Concomitant]
     Active Substance: PREGABALIN
     Route: 065
  13. TRIAMCINOLONE [Concomitant]
     Active Substance: TRIAMCINOLONE
     Indication: Product used for unknown indication
     Route: 065

REACTIONS (5)
  - Macular degeneration [None]
  - Condition aggravated [None]
  - Feeling abnormal [None]
  - Dizziness [None]
  - Drug ineffective [Unknown]

NARRATIVE: CASE EVENT DATE: 20250101
